FAERS Safety Report 11643600 (Version 2)
Quarter: 2016Q1

REPORT INFORMATION
  Report Type: Not Available
  Country: FR (occurrence: FR)
  Receive Date: 20151020
  Receipt Date: 20160210
  Transmission Date: 20160525
  Serious: Yes (Death)
  Sender: FDA-Public Use
  Company Number: FR-MUNDIPHARMA DS AND PHARMACOVIGILANCE-GBR-2015-0031365

PATIENT
  Age: 57 Year
  Sex: Female

DRUGS (17)
  1. TERCIAN                            /00759301/ [Concomitant]
     Active Substance: CYAMEMAZINE
  2. ACTONEL [Concomitant]
     Active Substance: RISEDRONATE SODIUM
  3. IXEL                               /01054401/ [Concomitant]
     Active Substance: MILNACIPRAN HYDROCHLORIDE
  4. LEDERFOLINE [Concomitant]
     Active Substance: LEUCOVORIN CALCIUM
  5. ZYMAD [Concomitant]
     Active Substance: CHOLECALCIFEROL
  6. TARDYFERON [Concomitant]
     Active Substance: FERROUS SULFATE\FOLIC ACID
  7. TAHOR [Concomitant]
     Active Substance: ATORVASTATIN CALCIUM
  8. PREVISCAN                          /00261401/ [Concomitant]
     Active Substance: PENTOXIFYLLINE
  9. DIFFU K [Concomitant]
     Active Substance: POTASSIUM CHLORIDE
  10. OXYNORM [Suspect]
     Active Substance: OXYCODONE HYDROCHLORIDE
     Indication: PAIN
     Dosage: UNK
     Route: 048
     Dates: start: 2015
  11. SERETIDE [Concomitant]
     Active Substance: FLUTICASONE FUROATE\SALMETEROL XINAFOATE
  12. XANAX [Concomitant]
     Active Substance: ALPRAZOLAM
  13. OXYCONTIN [Suspect]
     Active Substance: OXYCODONE HYDROCHLORIDE
     Indication: PRODUCT USED FOR UNKNOWN INDICATION
     Dosage: UNK
     Route: 048
     Dates: start: 2015
  14. EUPANTOL [Concomitant]
     Active Substance: PANTOPRAZOLE SODIUM
  15. CORTANCYL [Concomitant]
     Active Substance: PREDNISONE
  16. MECIR [Concomitant]
     Active Substance: TAMSULOSIN HYDROCHLORIDE
  17. PLAQUENIL [Concomitant]
     Active Substance: HYDROXYCHLOROQUINE SULFATE

REACTIONS (5)
  - Septic shock [Fatal]
  - Faecaloma [Fatal]
  - Peritonitis [Fatal]
  - Metabolic acidosis [Fatal]
  - Multiple organ dysfunction syndrome [Fatal]

NARRATIVE: CASE EVENT DATE: 20150704
